FAERS Safety Report 8827567 (Version 2)
Quarter: 2012Q4

REPORT INFORMATION
  Report Type: Report from Study
  Country: AU (occurrence: AU)
  Receive Date: 20121008
  Receipt Date: 20121015
  Transmission Date: 20130627
  Serious: Yes (Other)
  Sender: FDA-Public Use
  Company Number: AU-JNJFOC-20121001812

PATIENT
  Sex: Male

DRUGS (1)
  1. INVEGA SUSTENNA [Suspect]
     Indication: PRODUCT USED FOR UNKNOWN INDICATION
     Route: 030

REACTIONS (7)
  - Mental disorder [Unknown]
  - Depression [Unknown]
  - Aggression [Unknown]
  - Akathisia [Unknown]
  - Aggression [Unknown]
  - Logorrhoea [Unknown]
  - Mood swings [Unknown]
